FAERS Safety Report 5866755-4 (Version None)
Quarter: 2008Q3

REPORT INFORMATION
  Report Type: 
  Country: None (occurrence: None)
  Receive Date: 20080902
  Receipt Date: 20080826
  Transmission Date: 20090109
  Serious: Yes (Life-Threatening, Hospitalization)
  Sender: FDA-Public Use
  Company Number: FR-BAYER-200824995GPV

PATIENT
  Age: 52 Year
  Sex: Female
  Weight: 53 kg

DRUGS (3)
  1. IZILOX [Suspect]
     Indication: ACUTE SINUSITIS
     Route: 048
     Dates: start: 20080805, end: 20080805
  2. CEPHALOSPORINS [Concomitant]
     Indication: SINUSITIS
     Route: 065
  3. MACROLIDES [Concomitant]
     Indication: SINUSITIS
     Route: 065

REACTIONS (7)
  - ANAPHYLACTIC SHOCK [None]
  - BRADYCARDIA [None]
  - CIRCULATORY COLLAPSE [None]
  - HYPOTENSION [None]
  - SYNCOPE [None]
  - URINARY INCONTINENCE [None]
  - URTICARIA [None]
